FAERS Safety Report 8204811-6 (Version None)
Quarter: 2012Q1

REPORT INFORMATION
  Report Type: 
  Country: None (occurrence: None)
  Receive Date: 20120309
  Receipt Date: 20120301
  Transmission Date: 20120608
  Serious: Yes (Disabling, Other)
  Sender: FDA-Public Use
  Company Number: 2012SP011950

PATIENT
  Sex: Male

DRUGS (2)
  1. VICTRELIS [Suspect]
     Indication: HEPATITIS C
  2. PEG-INTRON [Suspect]
     Indication: HEPATITIS C
     Route: 030

REACTIONS (1)
  - BLINDNESS UNILATERAL [None]
